FAERS Safety Report 26042565 (Version 2)
Quarter: 2025Q4

REPORT INFORMATION
  Report Type: Spontaneous
  Country: EU (occurrence: EU)
  Receive Date: 20251113
  Receipt Date: 20251202
  Transmission Date: 20260118
  Serious: Yes (Death, Hospitalization, Other)
  Sender: MYLAN
  Company Number: EU-BoehringerIngelheim-2025-BI-103717

PATIENT
  Age: 85 Year
  Sex: Male
  Weight: 62 kg

DRUGS (4)
  1. DABIGATRAN [Suspect]
     Active Substance: DABIGATRAN
     Indication: Cerebrovascular accident prophylaxis
     Dosage: 110 MILLIGRAM, BID (CAPSULE, HARD)
     Dates: start: 20151125, end: 20251022
  2. DABIGATRAN [Suspect]
     Active Substance: DABIGATRAN
     Indication: Atrial fibrillation
     Dosage: 110 MILLIGRAM, BID (CAPSULE, HARD)
     Route: 065
     Dates: start: 20151125, end: 20251022
  3. DABIGATRAN [Suspect]
     Active Substance: DABIGATRAN
     Dosage: 110 MILLIGRAM, BID (CAPSULE, HARD)
     Route: 065
     Dates: start: 20151125, end: 20251022
  4. DABIGATRAN [Suspect]
     Active Substance: DABIGATRAN
     Dosage: 110 MILLIGRAM, BID (CAPSULE, HARD)
     Dates: start: 20151125, end: 20251022

REACTIONS (4)
  - Craniocerebral injury [Fatal]
  - Nervous system disorder [Fatal]
  - Cerebral haemorrhage [Fatal]
  - Brain oedema [Unknown]

NARRATIVE: CASE EVENT DATE: 20251023
